FAERS Safety Report 25913371 (Version 1)
Quarter: 2025Q4

REPORT INFORMATION
  Report Type: Spontaneous
  Country: CN (occurrence: CN)
  Receive Date: 20251013
  Receipt Date: 20251013
  Transmission Date: 20260118
  Serious: Yes (Life-Threatening, Hospitalization, Other)
  Sender: Onesource Specialty Pharma
  Company Number: CN-STRIDES ARCOLAB LIMITED-2025OS000915

PATIENT
  Age: 42 Year
  Sex: Female

DRUGS (12)
  1. ETOPOSIDE [Suspect]
     Active Substance: ETOPOSIDE
     Indication: Haemophagocytic lymphohistiocytosis
     Dosage: 100 MILLIGRAM, ON DAYS 2 AND 15
     Route: 065
  2. PIPERACILLIN SODIUM\TAZOBACTAM SODIUM [Suspect]
     Active Substance: PIPERACILLIN SODIUM\TAZOBACTAM SODIUM
     Indication: Pneumonia
     Dosage: 4.5 GRAM, Q8H
     Route: 042
  3. PIPERACILLIN SODIUM\TAZOBACTAM SODIUM [Suspect]
     Active Substance: PIPERACILLIN SODIUM\TAZOBACTAM SODIUM
     Dosage: 4.5 GRAM, Q8H
     Route: 042
  4. MOXIFLOXACIN [Suspect]
     Active Substance: MOXIFLOXACIN
     Indication: Anti-infective therapy
     Dosage: 0.4 GRAM, Q8H
     Route: 042
  5. DEXAMETHASONE [Suspect]
     Active Substance: DEXAMETHASONE
     Indication: Haemophagocytic lymphohistiocytosis
     Dosage: 10 MILLIGRAM, QD
     Route: 065
  6. RUXOLITINIB [Suspect]
     Active Substance: RUXOLITINIB
     Indication: Haemophagocytic lymphohistiocytosis
     Dosage: 100 MILLIGRAM, BID
     Route: 065
  7. MEROPENEM [Suspect]
     Active Substance: MEROPENEM
     Indication: Anti-infective therapy
     Dosage: 1 GRAM, Q8H
     Route: 042
  8. VANCOMYCIN [Suspect]
     Active Substance: VANCOMYCIN
     Indication: Anti-infective therapy
     Dosage: 1 GRAM, EVERY 12 HRS
     Route: 042
  9. VORICONAZOLE [Suspect]
     Active Substance: VORICONAZOLE
     Indication: Anti-infective therapy
     Dosage: 200 MILLIGRAM, EVERY 12 HRS
     Route: 042
  10. METHYLPREDNISOLONE [Suspect]
     Active Substance: METHYLPREDNISOLONE
     Indication: Product used for unknown indication
     Dosage: 40 MILLIGRAM, OD
     Route: 042
  11. OMADACYCLINE [Concomitant]
     Active Substance: OMADACYCLINE
     Indication: Chlamydial infection
     Dosage: 0.1 GRAM, QD
     Route: 042
  12. OMADACYCLINE [Concomitant]
     Active Substance: OMADACYCLINE
     Dosage: 0.1 GRAM, EVERY 12 HRS
     Route: 042

REACTIONS (2)
  - Condition aggravated [Unknown]
  - Off label use [Unknown]
